FAERS Safety Report 14627240 (Version 3)
Quarter: 2018Q2

REPORT INFORMATION
  Report Type: Report from Study
  Country: JP (occurrence: JP)
  Receive Date: 20180312
  Receipt Date: 20180530
  Transmission Date: 20180711
  Serious: Yes (Other)
  Sender: FDA-Public Use
  Company Number: JP-PFIZER INC-2018098424

PATIENT
  Age: 85 Year
  Sex: Male

DRUGS (1)
  1. CELECOX [Suspect]
     Active Substance: CELECOXIB
     Indication: ANALGESIC THERAPY
     Dosage: 200 MG, 2X/DAY (400 MG TAKEN IN 2 PARTS IS STARTED ON DAY 1 AFTER SURGERY)
     Route: 048

REACTIONS (1)
  - Delirium [Unknown]
